FAERS Safety Report 8917269 (Version 3)
Quarter: 2013Q1

REPORT INFORMATION
  Report Type: Spontaneous
  Country: CA (occurrence: CA)
  Receive Date: 20121120
  Receipt Date: 20130211
  Transmission Date: 20140127
  Serious: Yes (Other)
  Sender: FDA-Public Use
  Company Number: CA-JNJFOC-20121108244

PATIENT
  Age: 87 Year
  Sex: Female
  Weight: 65.77 kg

DRUGS (8)
  1. IMODIUM [Suspect]
     Route: 048
  2. IMODIUM [Suspect]
     Indication: DIARRHOEA
     Route: 048
     Dates: start: 20121110, end: 20121112
  3. UNKNOWN MEDICATION [Concomitant]
     Indication: HYPERTENSION
     Dosage: SINCE 15 YEARS
     Route: 065
  4. CALCIUM MEDICATIONS [Concomitant]
     Indication: PROPHYLAXIS
     Dosage: SINCE 15 YEARS
     Route: 065
  5. ATENOLOL [Concomitant]
     Indication: HYPERTENSION
     Dosage: SINCE 10 YEARS
     Route: 065
  6. VALSARTAN [Concomitant]
     Indication: HYPERTENSION
     Dosage: SINCE 10 YEARS
     Route: 065
  7. GLUCOSAMINE / CHONDROITIN [Concomitant]
     Indication: JOINT STIFFNESS
     Dosage: SINCE 10 YEARS
     Route: 065
  8. CALTRATE PLUS [Concomitant]
     Indication: BONE DISORDER
     Dosage: SINCE 10 YEARS
     Route: 065

REACTIONS (1)
  - Herpes zoster [Recovered/Resolved]
